FAERS Safety Report 15962359 (Version 1)
Quarter: 2019Q1

REPORT INFORMATION
  Report Type: Spontaneous
  Country: IT (occurrence: IT)
  Receive Date: 20190214
  Receipt Date: 20190214
  Transmission Date: 20190417
  Serious: Yes (Hospitalization)
  Sender: FDA-Public Use
  Company Number: IT-PFIZER INC-2019065546

PATIENT
  Age: 75 Year
  Sex: Male

DRUGS (1)
  1. TAVOR (LORAZEPAM) [Suspect]
     Active Substance: LORAZEPAM
     Indication: MENTAL DISORDER
     Dosage: 5 MG, 1X/DAY
     Route: 048
     Dates: start: 20190101, end: 20190119

REACTIONS (4)
  - Product use in unapproved indication [Unknown]
  - Drug abuse [Unknown]
  - Confusional state [Unknown]
  - Respiratory distress [Unknown]

NARRATIVE: CASE EVENT DATE: 20190101
